FAERS Safety Report 7070618-9 (Version None)
Quarter: 2010Q4

REPORT INFORMATION
  Report Type: 
  Country: None (occurrence: None)
  Receive Date: 20101029
  Receipt Date: 20101021
  Transmission Date: 20110411
  Serious: Yes (Other)
  Sender: FDA-Public Use
  Company Number: US-PFIZER INC-2010134523

PATIENT
  Age: 57 Year
  Sex: Female
  Weight: 113 kg

DRUGS (1)
  1. DETROL [Suspect]
     Indication: MICTURITION URGENCY
     Dosage: UNK
     Dates: start: 20100101, end: 20101001

REACTIONS (1)
  - INCONTINENCE [None]
